FAERS Safety Report 4621483-8 (Version None)
Quarter: 2005Q1

REPORT INFORMATION
  Report Type: 
  Country: None (occurrence: None)
  Receive Date: 20050328
  Receipt Date: 20050314
  Transmission Date: 20050727
  Serious: Yes (Death)
  Sender: FDA-Public Use
  Company Number: 2005-UK-00442UK (0)

PATIENT
  Sex: Male

DRUGS (11)
  1. COMBIVENT [Suspect]
     Dosage: 2 PUFFS THREE TIMES DAILY IH
     Route: 055
  2. BECLOMETASONE (BECLOMETASONE) (AE) [Concomitant]
  3. ASPIRIN [Concomitant]
  4. AMILORIDE HYDROCHLORIDE (AMILORIDE HYDROCHLORIDE) (TA) [Concomitant]
  5. DIGOXIN (DIGOXIN) (TA) [Concomitant]
  6. AMLODIPINE (AMLODIPINE) (TA) [Concomitant]
  7. RAMIPRIL (RAMIPRIL) (KA) [Concomitant]
  8. DIGOXIN (DIGOXIN) (TA) [Concomitant]
  9. FUROSEMIDE (FUROSEMIDE) (TA) [Concomitant]
  10. SALMETEROL (SALMETEROL) (AE) [Concomitant]
  11. SALMETEROL WITH FLUTICASONE (PL) [Concomitant]

REACTIONS (2)
  - CARDIAC FAILURE CONGESTIVE [None]
  - CHRONIC OBSTRUCTIVE PULMONARY DISEASE [None]
